FAERS Safety Report 20907402 (Version 1)
Quarter: 2022Q2

REPORT INFORMATION
  Report Type: Spontaneous
  Country: GB (occurrence: GB)
  Receive Date: 20220602
  Receipt Date: 20220602
  Transmission Date: 20220721
  Serious: Yes (Death)
  Sender: FDA-Public Use
  Company Number: GB-MYLANLABS-2022M1041731

PATIENT
  Age: 36 Year
  Sex: Male

DRUGS (1)
  1. TRAMADOL [Suspect]
     Active Substance: TRAMADOL
     Indication: Pain
     Dosage: HE TOOK TWICE THE RECOMMENDED MAXIMUM DOSE.
     Route: 065

REACTIONS (2)
  - Overdose [Fatal]
  - Accidental poisoning [Fatal]
